FAERS Safety Report 24691947 (Version 10)
Quarter: 2025Q3

REPORT INFORMATION
  Report Type: Spontaneous
  Country: US (occurrence: US)
  Receive Date: 20241203
  Receipt Date: 20250718
  Transmission Date: 20251020
  Serious: No
  Sender: PFIZER
  Company Number: US-PFIZER INC-PV202400103752

PATIENT
  Age: 3 Year
  Sex: Male
  Weight: 12.5 kg

DRUGS (5)
  1. GENOTROPIN [Suspect]
     Active Substance: SOMATROPIN
     Indication: Hypopituitarism
     Dosage: 0.65 MG, ALTERNATE 0.6 MG AND 0.7 MG/DAY, 6 DAYS/WEEK
     Route: 058
     Dates: start: 20240906
  2. GENOTROPIN [Suspect]
     Active Substance: SOMATROPIN
     Indication: Growth hormone deficiency
     Dosage: 0.65 MG, ALTERNATE 0.6 MG AND 0.7 MG/DAY, 6 DAYS/WEEK
     Route: 058
     Dates: start: 20240906
  3. GENOTROPIN [Suspect]
     Active Substance: SOMATROPIN
     Indication: Short stature
  4. CLONIDINE [Concomitant]
     Active Substance: CLONIDINE
     Indication: Sleep disorder
  5. CLONIDINE [Concomitant]
     Active Substance: CLONIDINE

REACTIONS (4)
  - Device use error [Unknown]
  - Poor quality device used [Unknown]
  - Device leakage [Unknown]
  - Device breakage [Unknown]

NARRATIVE: CASE EVENT DATE: 20241123
